FAERS Safety Report 4535226-X (Version None)
Quarter: 2004Q4

REPORT INFORMATION
  Report Type: 
  Country: None (occurrence: None)
  Receive Date: 20041214
  Receipt Date: 20041004
  Transmission Date: 20050328
  Serious: No
  Sender: FDA-Public Use
  Company Number: 2004238239US

PATIENT
  Age: 61 Year
  Sex: Female
  Weight: 113.4 kg

DRUGS (10)
  1. BEXTRA [Suspect]
     Indication: ARTHRITIS
     Dosage: 20 MG; 40 MG  : QD, ORAL
     Route: 048
     Dates: start: 20030101
  2. LIPITOR [Concomitant]
  3. CARDIZEM CD [Concomitant]
  4. AMITRIPTYLINE [Concomitant]
  5. OMEPRAZOLE [Concomitant]
  6. INSULIN [Concomitant]
  7. GLUCOPHAGE [Concomitant]
  8. VASOTEC [Concomitant]
  9. DYAZIDE [Concomitant]
  10. BENADRYL (DIPHENYDRAMINE HYDROCHLORIDE) [Concomitant]

REACTIONS (3)
  - DRUG EFFECT DECREASED [None]
  - INFLAMMATION [None]
  - SPINAL COLUMN STENOSIS [None]
